FAERS Safety Report 12256156 (Version 1)
Quarter: 2016Q2

REPORT INFORMATION
  Report Type: Spontaneous
  Country: US (occurrence: US)
  Receive Date: 20160412
  Receipt Date: 20160412
  Transmission Date: 20160815
  Serious: No
  Sender: FDA-Public Use
  Company Number: US-PFIZER INC-2016177263

PATIENT
  Age: 55 Year
  Sex: Female

DRUGS (5)
  1. EFFEXOR XR [Suspect]
     Active Substance: VENLAFAXINE HYDROCHLORIDE
     Dosage: 37.5 MG, TWICE PER DAY
     Route: 048
  2. VENLAFAXINE HCL [Suspect]
     Active Substance: VENLAFAXINE HYDROCHLORIDE
     Indication: MULTIPLE CHEMICAL SENSITIVITY
     Dosage: 25 MG, 1X/DAY AT NIGHT
     Route: 048
  3. GABAPENTIN. [Concomitant]
     Active Substance: GABAPENTIN
     Indication: NEURALGIA
     Dosage: 100 MG (80 MG CAPSULES, HALF HOUR LATER A 20 MG CAPSULE), 4-5 TIMES PER DAY
     Route: 048
  4. L THYROXINE [Concomitant]
     Active Substance: LEVOTHYROXINE SODIUM
     Indication: THYROID DISORDER
     Dosage: 220MCG, SPLIT INTO 4 DOSES
  5. EFFEXOR XR [Suspect]
     Active Substance: VENLAFAXINE HYDROCHLORIDE
     Indication: MULTIPLE CHEMICAL SENSITIVITY
     Dosage: 37.5 MG, ONCE IN THE MORNING
     Route: 048

REACTIONS (4)
  - Therapeutic response unexpected [Not Recovered/Not Resolved]
  - Pre-existing condition improved [Not Recovered/Not Resolved]
  - Energy increased [Not Recovered/Not Resolved]
  - Body height decreased [Unknown]
